FAERS Safety Report 10051870 (Version 3)
Quarter: 2014Q2

REPORT INFORMATION
  Report Type: Spontaneous
  Country: BE (occurrence: BE)
  Receive Date: 20140402
  Receipt Date: 20140506
  Transmission Date: 20141212
  Serious: Yes (Hospitalization, Other)
  Sender: FDA-Public Use
  Company Number: BE-AMGEN-BELSP2014023265

PATIENT
  Age: 67 Year
  Sex: Female

DRUGS (4)
  1. ENBREL [Suspect]
     Indication: PSORIATIC ARTHROPATHY
     Dosage: 50 MG, QWK
     Route: 058
     Dates: start: 201309, end: 20140320
  2. ARAVA [Concomitant]
     Dosage: 20 MG, UNK
     Route: 048
     Dates: start: 201304
  3. ASAFLOW [Concomitant]
     Dosage: 80 MG, UNK
     Route: 048
  4. BURINEX [Concomitant]
     Dosage: 0.5 MG, UNK
     Route: 048

REACTIONS (2)
  - Arthralgia [Unknown]
  - Joint dislocation [Recovering/Resolving]
